FAERS Safety Report 22112416 (Version 2)
Quarter: 2023Q2

REPORT INFORMATION
  Report Type: Spontaneous
  Country: JP (occurrence: JP)
  Receive Date: 20230319
  Receipt Date: 20230422
  Transmission Date: 20230721
  Serious: Yes (Other)
  Sender: FDA-Public Use
  Company Number: JP-UNITED THERAPEUTICS-UNT-2023-007388

PATIENT
  Age: 41 Year
  Sex: Female
  Weight: 47 kg

DRUGS (64)
  1. TYVASO [Suspect]
     Active Substance: TREPROSTINIL
     Indication: Heritable pulmonary arterial hypertension
     Dosage: 18 ?G, QID
     Dates: start: 20201030, end: 20201110
  2. TYVASO [Suspect]
     Active Substance: TREPROSTINIL
     Dosage: 18 ?G, BID
     Dates: start: 20201111, end: 20201111
  3. TYVASO [Suspect]
     Active Substance: TREPROSTINIL
     Dosage: 36 ?G, BID
     Dates: start: 20201111, end: 20201111
  4. TYVASO [Suspect]
     Active Substance: TREPROSTINIL
     Dosage: 36 ?G, QID
     Dates: start: 20201112, end: 20201125
  5. TYVASO [Suspect]
     Active Substance: TREPROSTINIL
     Dosage: 36 ?G, TID
     Dates: start: 20201126, end: 20201126
  6. TYVASO [Suspect]
     Active Substance: TREPROSTINIL
     Dosage: 18 ?G, QD
     Dates: start: 20201126, end: 20201126
  7. TYVASO [Suspect]
     Active Substance: TREPROSTINIL
     Dosage: 18 ?G, QID
     Dates: start: 20201127, end: 20201215
  8. TYVASO [Suspect]
     Active Substance: TREPROSTINIL
     Dosage: 18 ?G, TID
     Dates: start: 20201216, end: 20201216
  9. TYVASO [Suspect]
     Active Substance: TREPROSTINIL
     Dosage: 24 ?G, QD
     Dates: start: 20201216, end: 20201216
  10. TYVASO [Suspect]
     Active Substance: TREPROSTINIL
     Dosage: 24 ?G, QID
     Dates: start: 20201217, end: 20201226
  11. TYVASO [Suspect]
     Active Substance: TREPROSTINIL
     Dosage: 24 ?G, TID
     Dates: start: 20201227, end: 20201227
  12. TYVASO [Suspect]
     Active Substance: TREPROSTINIL
     Dosage: 12 ?G, QD
     Dates: start: 20201227, end: 20201227
  13. TYVASO [Suspect]
     Active Substance: TREPROSTINIL
     Dosage: 24 ?G, QID
     Dates: start: 20201228, end: 20210121
  14. TYVASO [Suspect]
     Active Substance: TREPROSTINIL
     Dosage: 24 ?G, BID
     Dates: start: 20210122, end: 20210122
  15. TYVASO [Suspect]
     Active Substance: TREPROSTINIL
     Dosage: 18 ?G, BID
     Dates: start: 20210122, end: 20210122
  16. TYVASO [Suspect]
     Active Substance: TREPROSTINIL
     Dosage: 18 ?G, QID
     Dates: start: 20210123, end: 20210420
  17. TYVASO [Suspect]
     Active Substance: TREPROSTINIL
     Dosage: 18 ?G, TID
     Dates: start: 20210421, end: 20210421
  18. TYVASO [Suspect]
     Active Substance: TREPROSTINIL
     Dosage: 24 ?G, QD
     Dates: start: 20210421, end: 20210421
  19. TYVASO [Suspect]
     Active Substance: TREPROSTINIL
     Dosage: 24 ?G, QID
     Dates: start: 20210422, end: 20210608
  20. TYVASO [Suspect]
     Active Substance: TREPROSTINIL
     Dosage: 24 ?G, TID
     Dates: start: 20210609, end: 20210609
  21. TYVASO [Suspect]
     Active Substance: TREPROSTINIL
     Dosage: 30 ?G, QD
     Dates: start: 20210609, end: 20210609
  22. TYVASO [Suspect]
     Active Substance: TREPROSTINIL
     Dosage: 30 ?G, QID
     Dates: start: 20210610, end: 20210706
  23. TYVASO [Suspect]
     Active Substance: TREPROSTINIL
     Dosage: 30 ?G, BID
     Dates: start: 20210707, end: 20210707
  24. TYVASO [Suspect]
     Active Substance: TREPROSTINIL
     Dosage: 24 ?G, BID
     Dates: start: 20210707, end: 20210707
  25. TYVASO [Suspect]
     Active Substance: TREPROSTINIL
     Dosage: 24 ?G, QID
     Dates: start: 20210708, end: 20211109
  26. TYVASO [Suspect]
     Active Substance: TREPROSTINIL
     Dosage: 24 ?G, TID
     Dates: start: 20211110, end: 20211110
  27. TYVASO [Suspect]
     Active Substance: TREPROSTINIL
     Dosage: 12 ?G, QD
     Dates: start: 20211110, end: 20211110
  28. TYVASO [Suspect]
     Active Substance: TREPROSTINIL
     Dosage: 12 ?G, QID
     Dates: start: 20211111
  29. COMIRNATY [Suspect]
     Active Substance: TOZINAMERAN
     Indication: COVID-19 immunisation
     Dosage: UNK
     Route: 030
     Dates: start: 20210715
  30. COMIRNATY [Suspect]
     Active Substance: TOZINAMERAN
     Dosage: UNK
     Route: 030
     Dates: start: 20210805
  31. COMIRNATY [Suspect]
     Active Substance: TOZINAMERAN
     Dosage: UNK
     Route: 030
     Dates: start: 20220225
  32. COMIRNATY [Suspect]
     Active Substance: TOZINAMERAN
     Dosage: UNK
     Route: 030
     Dates: start: 20220810
  33. OPSUMIT [Concomitant]
     Active Substance: MACITENTAN
     Indication: Heritable pulmonary arterial hypertension
     Dosage: 10 MG. UNK
     Route: 048
  34. ELIQUIS [Concomitant]
     Active Substance: APIXABAN
     Indication: Thrombosis prophylaxis
     Dosage: UNK
     Route: 048
     Dates: start: 20201126
  35. FERROUS SULFATE [Concomitant]
     Active Substance: FERROUS SULFATE
     Indication: Iron deficiency anaemia
     Dosage: UNK
     Route: 048
     Dates: start: 20201106
  36. FERROUS SULFATE [Concomitant]
     Active Substance: FERROUS SULFATE
     Dosage: UNK
     Route: 048
     Dates: start: 20210123, end: 20210324
  37. FERROUS SULFATE [Concomitant]
     Active Substance: FERROUS SULFATE
     Dosage: UNK
     Route: 048
     Dates: start: 20210902, end: 20220119
  38. NEXIUM [Concomitant]
     Active Substance: ESOMEPRAZOLE MAGNESIUM
     Indication: Gastritis prophylaxis
     Dosage: UNK
     Route: 048
  39. MESTINON [Concomitant]
     Active Substance: PYRIDOSTIGMINE BROMIDE
     Indication: Myasthenia gravis
     Dosage: UNK
     Route: 048
     Dates: start: 20220315
  40. PREDNISOLONE VALERATE ACETATE [Concomitant]
     Active Substance: PREDNISOLONE VALERATE ACETATE
     Indication: Eczema
     Dosage: UNK
     Route: 061
  41. WHITE PETROLATUM [Concomitant]
     Active Substance: PETROLATUM
     Indication: Eczema
     Dosage: UNK
     Route: 061
  42. NEUROTROPIN [Concomitant]
     Active Substance: NEUROTROPIN
     Indication: Thoracic outlet syndrome
     Dosage: UNK
     Route: 065
     Dates: start: 20210209, end: 20210209
  43. NEUROTROPIN [Concomitant]
     Active Substance: NEUROTROPIN
     Dosage: UNK
     Route: 065
     Dates: start: 20210706, end: 20210706
  44. NEUROTROPIN [Concomitant]
     Active Substance: NEUROTROPIN
     Dosage: UNK
     Route: 065
     Dates: start: 20211214, end: 20211214
  45. NEUROTROPIN [Concomitant]
     Active Substance: NEUROTROPIN
     Dosage: UNK
     Route: 065
     Dates: start: 20220607, end: 20220607
  46. NEUROTROPIN [Concomitant]
     Active Substance: NEUROTROPIN
     Dosage: UNK
     Route: 065
     Dates: start: 20230411, end: 20230411
  47. Neo vitacain [Concomitant]
     Indication: Thoracic outlet syndrome
     Dosage: UNK
     Route: 065
     Dates: start: 20210209, end: 20210209
  48. Neo vitacain [Concomitant]
     Dosage: UNK
     Route: 065
     Dates: start: 20210706, end: 20210706
  49. Neo vitacain [Concomitant]
     Dosage: UNK
     Route: 065
     Dates: start: 20211214, end: 20211214
  50. Neo vitacain [Concomitant]
     Dosage: UNK
     Route: 065
     Dates: start: 20220607, end: 20220607
  51. Neo vitacain [Concomitant]
     Dosage: UNK
     Route: 065
     Dates: start: 20230411, end: 20230411
  52. DEXAMETHASONE SODIUM PHOSPHATE [Concomitant]
     Active Substance: DEXAMETHASONE SODIUM PHOSPHATE
     Indication: Thoracic outlet syndrome
     Dosage: UNK
     Route: 065
     Dates: start: 20210209, end: 20210209
  53. DEXAMETHASONE SODIUM PHOSPHATE [Concomitant]
     Active Substance: DEXAMETHASONE SODIUM PHOSPHATE
     Dosage: UNK
     Route: 065
     Dates: start: 20210706, end: 20210706
  54. DEXAMETHASONE SODIUM PHOSPHATE [Concomitant]
     Active Substance: DEXAMETHASONE SODIUM PHOSPHATE
     Dosage: UNK
     Route: 065
     Dates: start: 20211214, end: 20211214
  55. DEXAMETHASONE SODIUM PHOSPHATE [Concomitant]
     Active Substance: DEXAMETHASONE SODIUM PHOSPHATE
     Dosage: UNK
     Route: 065
     Dates: start: 20220607, end: 20220607
  56. DEXAMETHASONE SODIUM PHOSPHATE [Concomitant]
     Active Substance: DEXAMETHASONE SODIUM PHOSPHATE
     Dosage: UNK
     Route: 065
     Dates: start: 20230411, end: 20230411
  57. REBAMIPIDE [Concomitant]
     Active Substance: REBAMIPIDE
     Indication: Gastritis prophylaxis
     Dosage: UNK
     Route: 048
     Dates: start: 20220128, end: 20220131
  58. REBAMIPIDE [Concomitant]
     Active Substance: REBAMIPIDE
     Dosage: UNK
     Route: 048
     Dates: start: 20221121, end: 20221123
  59. INFLUENZA VIRUS VACCINE [Concomitant]
     Active Substance: INFLUENZA VIRUS VACCINE
     Indication: Antiviral prophylaxis
     Dosage: UNK
     Route: 065
     Dates: start: 20211208, end: 20211208
  60. INFLUENZA VIRUS VACCINE [Concomitant]
     Active Substance: INFLUENZA VIRUS VACCINE
     Dosage: UNK
     Route: 065
     Dates: start: 20221214, end: 20221214
  61. BETAMETHASONE DIPROPIONATE [Concomitant]
     Active Substance: BETAMETHASONE DIPROPIONATE
     Indication: Eczema
     Dosage: UNK
     Route: 061
     Dates: start: 20221025, end: 20221106
  62. BETAMETHASONE DIPROPIONATE [Concomitant]
     Active Substance: BETAMETHASONE DIPROPIONATE
     Dosage: UNK
     Route: 061
     Dates: start: 20221214, end: 20221221
  63. HEPARINOID [Concomitant]
     Indication: Eczema
     Dosage: UNK
     Route: 061
     Dates: start: 20221025
  64. ZINC OXIDE [Concomitant]
     Active Substance: ZINC OXIDE
     Indication: Eczema
     Dosage: UNK
     Route: 061
     Dates: start: 20221214, end: 20221221

REACTIONS (29)
  - Cardiac failure [Recovered/Resolved]
  - Haemorrhage subcutaneous [Not Recovered/Not Resolved]
  - Pulmonary haemorrhage [Not Recovered/Not Resolved]
  - Rhinitis allergic [Not Recovered/Not Resolved]
  - Chest discomfort [Not Recovered/Not Resolved]
  - Nausea [Recovered/Resolved]
  - Hot flush [Recovered/Resolved]
  - Headache [Recovered/Resolved]
  - Throat irritation [Recovered/Resolved]
  - Nasopharyngitis [Recovered/Resolved]
  - Uterine polyp [Recovered/Resolved]
  - Haemoptysis [Recovered/Resolved]
  - Electrocardiogram abnormal [Recovered/Resolved]
  - Chest X-ray abnormal [Recovered/Resolved]
  - Dizziness [Recovered/Resolved]
  - Skin infection [Recovered/Resolved]
  - Palpitations [Recovered/Resolved]
  - Upper respiratory tract infection [Recovered/Resolved]
  - Vomiting [Recovered/Resolved]
  - Diarrhoea [Recovered/Resolved]
  - Pyrexia [Recovered/Resolved]
  - Contusion [Recovered/Resolved]
  - Road traffic accident [Recovered/Resolved]
  - Gastroenteritis [Recovered/Resolved]
  - Pharyngitis [Recovered/Resolved]
  - COVID-19 [Recovered/Resolved]
  - Hypersensitivity [Recovered/Resolved]
  - Myalgia [Recovered/Resolved]
  - Vaccination site reaction [Recovered/Resolved]

NARRATIVE: CASE EVENT DATE: 20201030
